FAERS Safety Report 12590086 (Version 1)
Quarter: 2016Q3

REPORT INFORMATION
  Report Type: Report from Study
  Country: US (occurrence: US)
  Receive Date: 20160725
  Receipt Date: 20160725
  Transmission Date: 20161109
  Serious: Yes (Hospitalization)
  Sender: FDA-Public Use
  Company Number: US-ABBVIE-16K-163-1665935-00

PATIENT
  Age: 57 Year
  Sex: Female

DRUGS (1)
  1. HUMIRA [Suspect]
     Active Substance: ADALIMUMAB
     Indication: RHEUMATOID ARTHRITIS
     Route: 058
     Dates: start: 20160604, end: 20160618

REACTIONS (7)
  - Aphasia [Recovered/Resolved]
  - Blood potassium decreased [Recovered/Resolved]
  - Pneumonia klebsiella [Recovering/Resolving]
  - Pneumonia escherichia [Recovering/Resolving]
  - Gait disturbance [Recovered/Resolved]
  - Dyspnoea [Recovering/Resolving]
  - Chest pain [Recovered/Resolved]

NARRATIVE: CASE EVENT DATE: 201606
